FAERS Safety Report 11707264 (Version 1)
Quarter: 2015Q4

REPORT INFORMATION
  Report Type: Spontaneous
  Country: US (occurrence: US)
  Receive Date: 20151104
  Receipt Date: 20151104
  Transmission Date: 20160304
  Serious: No
  Sender: FDA-Public Use
  Company Number: US-ELI_LILLY_AND_COMPANY-US201102005233

PATIENT
  Age: 68 Year
  Sex: Female

DRUGS (1)
  1. FORTEO [Suspect]
     Active Substance: TERIPARATIDE
     Indication: OSTEOPOROSIS
     Dosage: 20 UG, DAILY (1/D)
     Dates: start: 20101001

REACTIONS (19)
  - Stress [Unknown]
  - Rash [Unknown]
  - Injection site haemorrhage [Unknown]
  - Skin exfoliation [Unknown]
  - Muscle spasms [Unknown]
  - Arthralgia [Unknown]
  - Skin depigmentation [Unknown]
  - Bone pain [Unknown]
  - Pruritus [Unknown]
  - Blister [Unknown]
  - Discomfort [Unknown]
  - Injection site bruising [Unknown]
  - Injection site erythema [Unknown]
  - Nausea [Unknown]
  - Musculoskeletal pain [Unknown]
  - Spondylitis [Unknown]
  - Toothache [Unknown]
  - Tendonitis [Unknown]
  - Formication [Unknown]

NARRATIVE: CASE EVENT DATE: 201102
